FAERS Safety Report 15590344 (Version 1)
Quarter: 2018Q4

REPORT INFORMATION
  Report Type: Spontaneous
  Country: IT (occurrence: IT)
  Receive Date: 20181106
  Receipt Date: 20181106
  Transmission Date: 20190205
  Serious: Yes (Other)
  Sender: FDA-Public Use
  Company Number: IT-ASTRAZENECA-2018SF43407

PATIENT
  Age: 69 Year
  Sex: Male

DRUGS (12)
  1. SEROQUEL [Suspect]
     Active Substance: QUETIAPINE FUMARATE
     Indication: PRODUCT USED FOR UNKNOWN INDICATION
     Route: 048
     Dates: start: 20181019, end: 20181023
  2. RABEPRAZOLE SODIUM. [Concomitant]
     Active Substance: RABEPRAZOLE SODIUM
  3. FLUIMUCIL [Concomitant]
     Active Substance: ACETYLCYSTEINE
  4. CLEXANE [Concomitant]
     Active Substance: ENOXAPARIN SODIUM
  5. RIVOTRIL [Concomitant]
     Active Substance: CLONAZEPAM
  6. EUTIROX [Concomitant]
     Active Substance: LEVOTHYROXINE SODIUM
  7. BISOPROLOL HEMIFUMARATE [Concomitant]
     Active Substance: BISOPROLOL FUMARATE
  8. ETHAMBUTOL [Suspect]
     Active Substance: ETHAMBUTOL HYDROCHLORIDE
     Indication: INFECTION
     Route: 042
     Dates: start: 20181013, end: 20181023
  9. DIBASE [Concomitant]
     Active Substance: CHOLECALCIFEROL
  10. DIFLUCAN [Suspect]
     Active Substance: FLUCONAZOLE
     Indication: INFECTION
     Route: 042
     Dates: start: 20181013, end: 20181023
  11. RIFATER [Suspect]
     Active Substance: ISONIAZID\PYRAZINAMIDE\RIFAMPIN
     Indication: TUBERCULOSIS
     Route: 048
     Dates: start: 20181016, end: 20181023
  12. HALOPERIDOL DECANOATE. [Concomitant]
     Active Substance: HALOPERIDOL DECANOATE

REACTIONS (1)
  - Hepatitis toxic [Not Recovered/Not Resolved]

NARRATIVE: CASE EVENT DATE: 20181023
